FAERS Safety Report 12047234 (Version 2)
Quarter: 2016Q1

REPORT INFORMATION
  Report Type: Spontaneous
  Country: US (occurrence: US)
  Receive Date: 20160208
  Receipt Date: 20160310
  Transmission Date: 20160526
  Serious: Yes (Hospitalization, Other)
  Sender: FDA-Public Use
  Company Number: US-OTSUKA-2016_002798

PATIENT
  Age: 72 Year
  Sex: Female

DRUGS (37)
  1. SYNTHROID [Concomitant]
     Active Substance: LEVOTHYROXINE SODIUM
     Indication: ESSENTIAL HYPERTENSION
     Dosage: 1 DF, QD
     Route: 048
     Dates: start: 20130625
  2. POTASSIUM CHLORIDE. [Concomitant]
     Active Substance: POTASSIUM CHLORIDE
     Indication: PRODUCT USED FOR UNKNOWN INDICATION
     Dosage: 1 DF, BID
     Route: 048
     Dates: start: 20160223, end: 20160225
  3. TIZANIDINE HCL [Concomitant]
     Active Substance: TIZANIDINE HYDROCHLORIDE
     Indication: PRODUCT USED FOR UNKNOWN INDICATION
     Dosage: 1 DF, UNK (EVERY 6 HOURS AS NEEDED)
     Route: 048
     Dates: start: 20160223
  4. WARFARIN SODIUM. [Concomitant]
     Active Substance: WARFARIN SODIUM
     Indication: PRODUCT USED FOR UNKNOWN INDICATION
     Dosage: UNK (AS DIRECTED)
     Route: 048
     Dates: start: 20120613
  5. KETOTIFEN [Concomitant]
     Active Substance: KETOTIFEN
     Indication: PRODUCT USED FOR UNKNOWN INDICATION
     Dosage: 1 GTT EACH EYE Q8 TO 12 HR, PRN
     Route: 047
  6. SYNTHROID [Concomitant]
     Active Substance: LEVOTHYROXINE SODIUM
     Indication: HYPONATRAEMIA
  7. CLARITIN [Concomitant]
     Active Substance: LORATADINE
     Indication: PRODUCT USED FOR UNKNOWN INDICATION
     Dosage: 10 MG, QD
     Route: 048
  8. TYLENOL [Concomitant]
     Active Substance: ACETAMINOPHEN
     Indication: PRODUCT USED FOR UNKNOWN INDICATION
     Dosage: AS NEEDED
     Route: 065
  9. LIPITOR [Concomitant]
     Active Substance: ATORVASTATIN CALCIUM
     Indication: PRODUCT USED FOR UNKNOWN INDICATION
     Dosage: 1 DF, QD (AT BEDTIME)
     Route: 048
     Dates: start: 20110916, end: 20150607
  10. ACETAMINOPHEN. [Concomitant]
     Active Substance: ACETAMINOPHEN
     Indication: PRODUCT USED FOR UNKNOWN INDICATION
     Dosage: 325 MG, UNK (1 TO 2 TABLET EVERY 4 HOUR AS NEEDED)
     Route: 048
     Dates: start: 20160223
  11. FEXOFENADINE HCL [Concomitant]
     Active Substance: FEXOFENADINE HYDROCHLORIDE
     Indication: PRODUCT USED FOR UNKNOWN INDICATION
     Dosage: 1 DF, QD
     Route: 048
     Dates: start: 20110916
  12. PERCOCET [Concomitant]
     Active Substance: ACETAMINOPHEN\OXYCODONE HYDROCHLORIDE
     Indication: PRODUCT USED FOR UNKNOWN INDICATION
     Dosage: UNK
     Route: 065
  13. SYNTHROID [Concomitant]
     Active Substance: LEVOTHYROXINE SODIUM
     Indication: HYPERKALAEMIA
  14. LOVENOX [Concomitant]
     Active Substance: ENOXAPARIN SODIUM
     Indication: PRODUCT USED FOR UNKNOWN INDICATION
     Dosage: 30 MG, QD
     Route: 058
  15. COUMADIN [Concomitant]
     Active Substance: WARFARIN SODIUM
     Dosage: 0.5 MG, QD
     Route: 048
  16. LACTOBACILLUS ACIDOPHILUS\LACTOBACILLUS BULGARICUS [Concomitant]
     Active Substance: LACTOBACILLUS ACIDOPHILUS\LACTOBACILLUS DELBRUECKII SUBSP. BULGARICUS
     Indication: PRODUCT USED FOR UNKNOWN INDICATION
     Dosage: 1 UNK, TID
     Route: 048
  17. PROTONIX [Concomitant]
     Active Substance: PANTOPRAZOLE SODIUM
     Indication: PRODUCT USED FOR UNKNOWN INDICATION
     Dosage: 40 MG, QD
     Route: 048
  18. SAMSCA [Suspect]
     Active Substance: TOLVAPTAN
     Dosage: 30 MG, QD
     Route: 048
     Dates: start: 20160223
  19. LASIX [Concomitant]
     Active Substance: FUROSEMIDE
     Dosage: 80 MG, QD (IN EVENING)
     Route: 048
     Dates: start: 20150130
  20. VITAMIN B12 [Concomitant]
     Active Substance: CYANOCOBALAMIN
     Indication: PRODUCT USED FOR UNKNOWN INDICATION
     Dosage: 1 ML (1000 MCG/ML), QM
     Route: 030
     Dates: start: 20141015
  21. PRIMIDONE. [Concomitant]
     Active Substance: PRIMIDONE
     Indication: PRODUCT USED FOR UNKNOWN INDICATION
     Dosage: 1 DF, TID
     Route: 048
     Dates: start: 20121029
  22. VITAMIN D [Concomitant]
     Active Substance: CHOLECALCIFEROL
     Indication: PRODUCT USED FOR UNKNOWN INDICATION
     Dosage: 1 DF, QW
     Route: 048
     Dates: start: 20130625
  23. COUMADIN [Concomitant]
     Active Substance: WARFARIN SODIUM
     Indication: PRODUCT USED FOR UNKNOWN INDICATION
     Dosage: 5 MG, QD
     Route: 048
  24. SAMSCA [Suspect]
     Active Substance: TOLVAPTAN
     Indication: HYPONATRAEMIA
     Dosage: 15 MG, QD
     Route: 048
     Dates: start: 20141015
  25. SAMSCA [Suspect]
     Active Substance: TOLVAPTAN
     Indication: INAPPROPRIATE ANTIDIURETIC HORMONE SECRETION
     Dosage: 15 MG, QD (FOR 6 DAYS IN A WEEK)
     Route: 048
  26. BONIVA [Concomitant]
     Active Substance: IBANDRONATE SODIUM
     Indication: PRODUCT USED FOR UNKNOWN INDICATION
     Dosage: 1 DF, QM
     Route: 048
     Dates: start: 20150130
  27. TRIAMCINOLONE [Concomitant]
     Active Substance: TRIAMCINOLONE
     Indication: PRODUCT USED FOR UNKNOWN INDICATION
     Dosage: UNK, BID
     Route: 061
  28. ALDACTONE [Concomitant]
     Active Substance: SPIRONOLACTONE
     Indication: PRODUCT USED FOR UNKNOWN INDICATION
     Dosage: 1 DF, QD (IN MORNING)
     Route: 048
     Dates: start: 20130308
  29. ALDACTONE [Concomitant]
     Active Substance: SPIRONOLACTONE
     Dosage: 1 DF, TID
     Route: 048
     Dates: start: 20141015
  30. METHOTREXATE [Concomitant]
     Active Substance: METHOTREXATE
     Indication: RHEUMATOID ARTHRITIS
     Dosage: 2.5 MG, QW
     Route: 048
  31. LASIX [Concomitant]
     Active Substance: FUROSEMIDE
     Indication: GENERALISED OEDEMA
     Dosage: 120 MG, QD (IN MORNING)
     Route: 048
     Dates: start: 20150130
  32. WARFARIN [Concomitant]
     Active Substance: WARFARIN
     Indication: PRODUCT USED FOR UNKNOWN INDICATION
     Dosage: UNK
     Route: 065
  33. AMIODARONE HCL [Concomitant]
     Active Substance: AMIODARONE HYDROCHLORIDE
     Indication: PRODUCT USED FOR UNKNOWN INDICATION
     Dosage: 1 DF, QD
     Route: 048
     Dates: start: 20110916
  34. FOLIC ACID. [Concomitant]
     Active Substance: FOLIC ACID
     Indication: PRODUCT USED FOR UNKNOWN INDICATION
     Dosage: 1 DF, QD
     Route: 048
     Dates: start: 20110916, end: 20120910
  35. PERCOCET [Concomitant]
     Active Substance: ACETAMINOPHEN\OXYCODONE HYDROCHLORIDE
     Indication: PAIN
     Dosage: 1 DF, UNK (EVERY 4 HOUR AS NEEDED)
     Route: 048
     Dates: start: 20160223
  36. ALDACTONE [Concomitant]
     Active Substance: SPIRONOLACTONE
     Dosage: 1 DF, QD
     Route: 065
  37. CLINDAMYCIN [Concomitant]
     Active Substance: CLINDAMYCIN\CLINDAMYCIN PHOSPHATE
     Indication: PRODUCT USED FOR UNKNOWN INDICATION
     Dosage: 600 MG, Q8HR
     Route: 042

REACTIONS (5)
  - Cellulitis [Not Recovered/Not Resolved]
  - Oedema peripheral [Recovering/Resolving]
  - Weight decreased [Unknown]
  - Inappropriate schedule of drug administration [Unknown]
  - Femur fracture [Unknown]

NARRATIVE: CASE EVENT DATE: 201507
